FAERS Safety Report 9248804 (Version 1)
Quarter: 2013Q1

REPORT INFORMATION
  Report Type: Spontaneous
  Country: US (occurrence: None)
  Receive Date: 20130305
  Receipt Date: 20130305
  Transmission Date: 20140127
  Serious: Yes (Other)
  Sender: FDA-Public Use
  Company Number: 163-21880-12053276

PATIENT
  Age: 86 Year
  Sex: Male

DRUGS (4)
  1. REVLIMID [Suspect]
     Indication: PLASMA CELL MYELOMA
     Route: 048
     Dates: start: 201112, end: 20120524
  2. DOXAZOSIN (DOXAZOSIN) [Concomitant]
  3. LEVOTHYROXINE (LEVOTHYROXINE) [Concomitant]
  4. LOVENOX (HEPARIN-FRACTION, SODIUM SALT) [Concomitant]

REACTIONS (2)
  - Pancytopenia [None]
  - Pain in extremity [None]
